FAERS Safety Report 6435976-4 (Version None)
Quarter: 2009Q4

REPORT INFORMATION
  Report Type: 
  Country: None (occurrence: None)
  Receive Date: 20091111
  Receipt Date: 20091028
  Transmission Date: 20100525
  Serious: Yes (Hospitalization, Other)
  Sender: FDA-Public Use
  Company Number: SE-BAYER-200937947GPV

PATIENT
  Age: 38 Year
  Sex: Female

DRUGS (2)
  1. MIRENA [Suspect]
     Indication: DRUG USE FOR UNKNOWN INDICATION
     Dosage: BATCH/LOT NUMBER: 34142-01, MAVE 20080402, 014453
     Route: 015
     Dates: start: 20090505, end: 20091015
  2. IPREN [Concomitant]
     Indication: HEADACHE
     Route: 048

REACTIONS (5)
  - ABORTION MISSED [None]
  - FOREIGN BODY REACTION [None]
  - INDUCED ABORTION HAEMORRHAGE [None]
  - PREGNANCY WITH CONTRACEPTIVE DEVICE [None]
  - SYNCOPE [None]
